FAERS Safety Report 19776464 (Version 1)
Quarter: 2021Q3

REPORT INFORMATION
  Report Type: Spontaneous
  Country: US (occurrence: US)
  Receive Date: 20210901
  Receipt Date: 20210901
  Transmission Date: 20211014
  Serious: No
  Sender: FDA-Public Use
  Company Number: US-LANNETT COMPANY, INC.-US-2021LAN000279

PATIENT
  Age: 74 Year
  Sex: Female

DRUGS (2)
  1. LACTULOSE. [Suspect]
     Active Substance: LACTULOSE
     Indication: PRODUCT USED FOR UNKNOWN INDICATION
     Dosage: 10 G/15ML, UNK
     Route: 048
     Dates: start: 20210411, end: 20210514
  2. LACTULOSE. [Suspect]
     Active Substance: LACTULOSE
     Dosage: UNK (SWITCHED TO A DIFFERENT BRAND THAT IS UNFLAVORED)
     Route: 065
     Dates: start: 2021

REACTIONS (4)
  - Parosmia [Not Recovered/Not Resolved]
  - Dysgeusia [Not Recovered/Not Resolved]
  - Taste disorder [Not Recovered/Not Resolved]
  - Product taste abnormal [Unknown]

NARRATIVE: CASE EVENT DATE: 2021
